FAERS Safety Report 6547274-9 (Version None)
Quarter: 2010Q1

REPORT INFORMATION
  Report Type: 
  Country: None (occurrence: None)
  Receive Date: 20100122
  Receipt Date: 20100113
  Transmission Date: 20100710
  Serious: Yes (Hospitalization)
  Sender: FDA-Public Use
  Company Number: US-ELI_LILLY_AND_COMPANY-US201001002545

PATIENT
  Sex: Male

DRUGS (3)
  1. EFFIENT [Suspect]
     Indication: PERCUTANEOUS CORONARY INTERVENTION
     Dosage: 10 MG, DAILY (1/D)
     Route: 048
     Dates: start: 20100106, end: 20100101
  2. PLAVIX [Concomitant]
     Dates: end: 20100106
  3. PLAVIX [Concomitant]
     Dates: start: 20100113

REACTIONS (2)
  - DIZZINESS [None]
  - HYPOAESTHESIA [None]
